FAERS Safety Report 24040741 (Version 1)
Quarter: 2024Q3

REPORT INFORMATION
  Report Type: Spontaneous
  Country: US (occurrence: None)
  Receive Date: 20240701
  Receipt Date: 20240701
  Transmission Date: 20241016
  Serious: No
  Sender: Public
  Company Number: None

PATIENT
  Age: 52 Year
  Sex: Female
  Weight: 99 kg

DRUGS (1)
  1. CHLORAPREP SINGLE SWABSTICK [Suspect]
     Active Substance: CHLORHEXIDINE GLUCONATE\ISOPROPYL ALCOHOL
     Indication: Therapeutic skin care topical
     Dates: start: 20240625

REACTIONS (3)
  - Application site rash [None]
  - Application site vesicles [None]
  - Application site pruritus [None]

NARRATIVE: CASE EVENT DATE: 20240629
